FAERS Safety Report 7936486-5 (Version None)
Quarter: 2011Q4

REPORT INFORMATION
  Report Type: 
  Country: None (occurrence: None)
  Receive Date: 20111123
  Receipt Date: 20111110
  Transmission Date: 20120403
  Serious: Yes (Death)
  Sender: FDA-Public Use
  Company Number: JP-MYLANLABS-2011S1021443

PATIENT
  Age: 61 Year
  Sex: Male
  Weight: 48.5 kg

DRUGS (6)
  1. VENA /00000402/ [Concomitant]
     Indication: PREMEDICATION
     Route: 048
  2. ALOXI [Concomitant]
     Indication: PREMEDICATION
     Route: 041
  3. DEXAMETHASONE SODIUM PHOSPHATE [Concomitant]
     Indication: PREMEDICATION
     Route: 041
  4. ZANTAC [Concomitant]
     Indication: PREMEDICATION
     Route: 041
  5. PACLITAXEL [Suspect]
     Indication: LUNG SQUAMOUS CELL CARCINOMA STAGE UNSPECIFIED
     Route: 041
     Dates: start: 20110805, end: 20110902
  6. CARBOPLATIN [Suspect]
     Indication: LUNG SQUAMOUS CELL CARCINOMA STAGE UNSPECIFIED
     Route: 041
     Dates: start: 20110805, end: 20110902

REACTIONS (2)
  - HEPATIC FAILURE [None]
  - HEPATIC FUNCTION ABNORMAL [None]
